FAERS Safety Report 4401775-8 (Version None)
Quarter: 2004Q3

REPORT INFORMATION
  Report Type: 
  Country: None (occurrence: None)
  Receive Date: 20040719
  Receipt Date: 20040712
  Transmission Date: 20050211
  Serious: Yes (Hospitalization)
  Sender: FDA-Public Use
  Company Number: PHNR2004AU01219

PATIENT
  Age: 68 Year
  Sex: Female

DRUGS (9)
  1. EXELON [Suspect]
     Indication: DEMENTIA ALZHEIMER'S TYPE
     Dates: start: 20020219
  2. EXELON [Suspect]
     Dosage: 3 MG, BID
     Dates: end: 20020408
  3. CALTRATE [Concomitant]
     Dosage: 600 MG, QD
     Route: 048
  4. ENDEP [Concomitant]
     Dosage: 50 MG, QD
  5. LIPEX [Concomitant]
     Dosage: 80 MG, QD
     Route: 048
  6. NITRAZEPAM [Concomitant]
  7. PANAMAX [Concomitant]
  8. PREMARIN [Concomitant]
  9. PROVERA [Concomitant]

REACTIONS (3)
  - GASTRITIS [None]
  - HICCUPS [None]
  - NAUSEA [None]
